FAERS Safety Report 25839364 (Version 1)
Quarter: 2025Q3

REPORT INFORMATION
  Report Type: Spontaneous
  Country: US (occurrence: US)
  Receive Date: 20250924
  Receipt Date: 20250924
  Transmission Date: 20251021
  Serious: No
  Sender: CSL BEHRING
  Company Number: US-BEH-2025219172

PATIENT

DRUGS (1)
  1. HEMGENIX [Suspect]
     Active Substance: ETRANACOGENE DEZAPARVOVEC
     Route: 065
     Dates: start: 2024

REACTIONS (1)
  - Alanine aminotransferase increased [Unknown]

NARRATIVE: CASE EVENT DATE: 20240101
